FAERS Safety Report 9260047 (Version 5)
Quarter: 2013Q3

REPORT INFORMATION
  Report Type: Spontaneous
  Country: US (occurrence: US)
  Receive Date: 20130429
  Receipt Date: 20130712
  Transmission Date: 20140515
  Serious: Yes (Hospitalization, Other)
  Sender: FDA-Public Use
  Company Number: US-JNJFOC-20130411713

PATIENT
  Age: 42 Year
  Sex: Male

DRUGS (6)
  1. XARELTO [Suspect]
     Indication: BUDD-CHIARI SYNDROME
     Route: 048
     Dates: start: 201209, end: 201210
  2. LOVENOX [Suspect]
     Indication: PRODUCT USED FOR UNKNOWN INDICATION
     Route: 065
     Dates: start: 20121015
  3. DILAUDID [Concomitant]
     Route: 065
     Dates: start: 20121008
  4. SOLIRIS [Concomitant]
     Indication: PAROXYSMAL NOCTURNAL HAEMOGLOBINURIA
     Route: 065
     Dates: start: 20121023
  5. NEUPOGEN [Concomitant]
     Route: 065
     Dates: start: 20121016
  6. NEUPOGEN [Concomitant]
     Route: 065
     Dates: start: 20121010

REACTIONS (5)
  - Pericardial effusion [Recovered/Resolved]
  - Swelling face [Unknown]
  - Adverse event [Unknown]
  - Paroxysmal nocturnal haemoglobinuria [Unknown]
  - Local swelling [Unknown]
